FAERS Safety Report 5652969-5 (Version None)
Quarter: 2008Q1

REPORT INFORMATION
  Report Type: 
  Country: None (occurrence: None)
  Receive Date: 20080131
  Receipt Date: 20071008
  Transmission Date: 20080703
  Serious: No
  Sender: FDA-Public Use
  Company Number: US200710002338

PATIENT
  Age: 56 Year
  Sex: Female

DRUGS (2)
  1. BYETTA [Suspect]
     Dosage: 5 UG, SUBCUTANEOUS : 10 UG, SUBCUTANEOUS : 5 UG, SUBCUTANEOUS
     Route: 058
  2. EXENATIDE 10MCG PEN, DISPOSABLE DEVICE (EXENATIDE PEN (10 MCG)) PEN, D [Concomitant]

REACTIONS (4)
  - DIZZINESS [None]
  - DYSPEPSIA [None]
  - NAUSEA [None]
  - TREMOR [None]
